FAERS Safety Report 24206580 (Version 1)
Quarter: 2024Q3

REPORT INFORMATION
  Report Type: Report from Study
  Country: IT (occurrence: IT)
  Receive Date: 20240813
  Receipt Date: 20240813
  Transmission Date: 20241016
  Serious: Yes (Hospitalization, Other)
  Sender: JAZZ
  Company Number: IT-JAZZ PHARMACEUTICALS-2024-IT-008296

PATIENT
  Age: 69 Year
  Sex: Male

DRUGS (5)
  1. VYXEOS [Suspect]
     Active Substance: CYTARABINE\DAUNORUBICIN
     Indication: Acute myeloid leukaemia
     Dosage: 44-96 MILLIGRAM (DAYS 1-3)
     Route: 042
     Dates: start: 20240523, end: 20240525
  2. VYXEOS [Suspect]
     Active Substance: CYTARABINE\DAUNORUBICIN
     Dosage: 40.8 MILLIGRAM DAYS 1-3-5
     Route: 042
     Dates: start: 20240413, end: 20240417
  3. VYXEOS [Suspect]
     Active Substance: CYTARABINE\DAUNORUBICIN
     Dosage: UNK
     Dates: start: 20230413, end: 20230417
  4. VYXEOS [Suspect]
     Active Substance: CYTARABINE\DAUNORUBICIN
     Dosage: UNK
     Dates: start: 20240527, end: 20240529
  5. VYXEOS [Suspect]
     Active Substance: CYTARABINE\DAUNORUBICIN
     Dosage: 70.8 MILLIGRAM DAYS  1-3-5
     Route: 042
     Dates: start: 20240613, end: 20240617

REACTIONS (4)
  - Thrombocytopenia [Recovered/Resolved]
  - Neutropenia [Recovered/Resolved]
  - Thrombocytopenia [Not Recovered/Not Resolved]
  - Neutropenia [Recovered/Resolved]

NARRATIVE: CASE EVENT DATE: 20240413
